FAERS Safety Report 11338238 (Version 1)
Quarter: 2015Q3

REPORT INFORMATION
  Report Type: Spontaneous
  Country: US (occurrence: US)
  Receive Date: 20150803
  Receipt Date: 20150803
  Transmission Date: 20151125
  Serious: No
  Sender: FDA-Public Use
  Company Number: US-ELI_LILLY_AND_COMPANY-US200701004911

PATIENT
  Sex: Female

DRUGS (6)
  1. STRATTERA [Suspect]
     Active Substance: ATOMOXETINE HYDROCHLORIDE
     Dosage: 18 MG, UNK
     Dates: start: 2007
  2. STRATTERA [Suspect]
     Active Substance: ATOMOXETINE HYDROCHLORIDE
     Indication: ATTENTION DEFICIT/HYPERACTIVITY DISORDER
     Dosage: 40 MG, DAILY (1/D)
     Dates: start: 2004
  3. STRATTERA [Suspect]
     Active Substance: ATOMOXETINE HYDROCHLORIDE
     Dosage: 18 MG, UNK
  4. MULTIVITAMIN [Concomitant]
     Active Substance: VITAMINS
     Dates: start: 200701
  5. STRATTERA [Suspect]
     Active Substance: ATOMOXETINE HYDROCHLORIDE
     Dosage: 40 MG, UNK
     Dates: start: 2007, end: 2007
  6. OMEGA-3 FATTY ACIDS [Concomitant]
     Active Substance: OMEGA-3 FATTY ACIDS

REACTIONS (19)
  - Fatigue [Not Recovered/Not Resolved]
  - Rash macular [Recovered/Resolved]
  - Abdominal pain upper [Not Recovered/Not Resolved]
  - Abnormal behaviour [Not Recovered/Not Resolved]
  - Abdominal pain upper [Recovered/Resolved]
  - Malaise [Recovered/Resolved]
  - Insomnia [Recovered/Resolved]
  - Nightmare [Recovered/Resolved]
  - Regressive behaviour [Recovered/Resolved]
  - Decreased appetite [Recovered/Resolved]
  - Weight increased [Recovered/Resolved]
  - Pallor [Recovered/Resolved]
  - Enuresis [Recovered/Resolved]
  - Abnormal behaviour [Recovered/Resolved]
  - Pain [Recovered/Resolved]
  - Hypertension [Recovering/Resolving]
  - Drug ineffective [Recovering/Resolving]
  - Movement disorder [Not Recovered/Not Resolved]
  - Constipation [Recovered/Resolved]

NARRATIVE: CASE EVENT DATE: 2004
